FAERS Safety Report 17022333 (Version 1)
Quarter: 2019Q4

REPORT INFORMATION
  Report Type: Spontaneous
  Country: US (occurrence: US)
  Receive Date: 20191008
  Receipt Date: 20191008
  Transmission Date: 20200122
  Serious: Yes (Hospitalization)
  Sender: FDA-Public Use
  Company Number: None

PATIENT
  Age: 15 Year
  Sex: Male

DRUGS (6)
  1. MUPIROCIN. [Concomitant]
     Active Substance: MUPIROCIN
  2. HYDROCO/APAP [Concomitant]
     Active Substance: ACETAMINOPHEN\HYDROCODONE
  3. HYD POL/CMS [Concomitant]
  4. PREDNISONE. [Concomitant]
     Active Substance: PREDNISONE
  5. AFINITOR [Suspect]
     Active Substance: EVEROLIMUS
     Indication: BRAIN NEOPLASM MALIGNANT
     Route: 048
     Dates: start: 20170120
  6. ZELBORRAF [Concomitant]

REACTIONS (1)
  - Sinus operation [None]

NARRATIVE: CASE EVENT DATE: 201908
